FAERS Safety Report 14176931 (Version 1)
Quarter: 2017Q4

REPORT INFORMATION
  Report Type: Spontaneous
  Country: US (occurrence: US)
  Receive Date: 20171110
  Receipt Date: 20171110
  Transmission Date: 20180321
  Serious: No
  Sender: FDA-Public Use
  Company Number: None

PATIENT
  Age: 29 Year
  Sex: Female

DRUGS (1)
  1. PENTASA [Suspect]
     Active Substance: MESALAMINE
     Indication: CROHN^S DISEASE

REACTIONS (6)
  - Alopecia [None]
  - Oropharyngeal pain [None]
  - Onychoclasis [None]
  - Decreased appetite [None]
  - Weight decreased [None]
  - Ocular hyperaemia [None]

NARRATIVE: CASE EVENT DATE: 20170928
